FAERS Safety Report 4401011-2 (Version None)
Quarter: 2004Q3

REPORT INFORMATION
  Report Type: 
  Country: None (occurrence: None)
  Receive Date: 20040907
  Receipt Date: 20030918
  Transmission Date: 20050211
  Serious: No
  Sender: FDA-Public Use
  Company Number: US-BRISTOL-MYERS SQUIBB COMPANY-12387056

PATIENT
  Age: 76 Year
  Sex: Female
  Weight: 52 kg

DRUGS (10)
  1. WARFARIN SODIUM [Suspect]
     Indication: HEART VALVE REPLACEMENT
     Dosage: DOSAGE: 2MG DAILY FOR FIVE DAYS WEEKLY AND HALF A TABLET TWO DAYS WEEKLY
     Route: 048
  2. METOPROLOL [Concomitant]
  3. COZAAR [Concomitant]
  4. POTASSIUM [Concomitant]
  5. AVANDIA [Concomitant]
  6. LIPITOR [Concomitant]
  7. DILANTIN [Concomitant]
  8. FEOSOL [Concomitant]
  9. DEMADEX [Concomitant]
  10. ZAROXOLYN [Concomitant]

REACTIONS (1)
  - INTERNATIONAL NORMALISED RATIO DECREASED [None]
